APPROVED DRUG PRODUCT: ACETIC ACID
Active Ingredient: ACETIC ACID, GLACIAL
Strength: 2%
Dosage Form/Route: SOLUTION/DROPS;OTIC
Application: A040166 | Product #001
Applicant: CHARTWELL RX SCIENCES LLC
Approved: Jul 26, 1996 | RLD: No | RS: No | Type: DISCN